FAERS Safety Report 9857519 (Version 1)
Quarter: 2014Q1

REPORT INFORMATION
  Report Type: Report from Study
  Country: US (occurrence: US)
  Receive Date: 20140131
  Receipt Date: 20140131
  Transmission Date: 20141002
  Serious: Yes (Hospitalization)
  Sender: FDA-Public Use
  Company Number: US-ROCHE-1341278

PATIENT
  Sex: 0

DRUGS (3)
  1. RITUXIMAB [Suspect]
     Indication: SYSTEMIC LUPUS ERYTHEMATOSUS
     Dosage: SIX INFUSIONS OF RITUXIMAB 750 MG/M2 (UPTO A MAXIMUM DOSE OF 1 GRAM PER INFUSION). THE INFUSION WAS
     Route: 042
  2. CYCLOPHOSPHAMIDE [Suspect]
     Indication: SYSTEMIC LUPUS ERYTHEMATOSUS
     Dosage: 24 HOURS LATER AFTER RITUXIMAB INFUSION, CYCLOPHOSPHAMIDE INFUSION WAS STARTED AT 750 MG/M2 WITH A T
     Route: 042
  3. PREDNISONE [Concomitant]
     Dosage: THERAPY WITH PREDNISONE WAS REDUCED WITHOUT SLE FLAIR
     Route: 065

REACTIONS (1)
  - Febrile neutropenia [Recovered/Resolved]
